FAERS Safety Report 16438860 (Version 5)
Quarter: 2020Q4

REPORT INFORMATION
  Report Type: Report from Study
  Country: NL (occurrence: NL)
  Receive Date: 20190617
  Receipt Date: 20201118
  Transmission Date: 20210113
  Serious: Yes (Hospitalization)
  Sender: FDA-Public Use
  Company Number: NL-ROCHE-2289486

PATIENT
  Age: 81 Year
  Sex: Female
  Weight: 56.4 kg

DRUGS (3)
  1. BEVACIZUMAB. [Suspect]
     Active Substance: BEVACIZUMAB
     Indication: OVARIAN CANCER
     Dosage: MOST RECENT DOSE OF BEVACIZUMAB (890 MG) PRIOR TO HAEMORRHAGIC STROKE ONSET: 05/MAR/2019
     Route: 042
     Dates: start: 20181213
  2. BLINDED ASPIRIN [Suspect]
     Active Substance: ASPIRIN
     Indication: OVARIAN CANCER
     Dosage: MOST RECENT DOSE OF BLINDED ASPIRIN PRIOR TO HAEMORRHAGIC STROKE ONSET: 20/MAR/2019
     Route: 048
     Dates: start: 20181213
  3. ATEZOLIZUMAB. [Suspect]
     Active Substance: ATEZOLIZUMAB
     Indication: OVARIAN CANCER
     Dosage: MOST RECENT DOSE OF ATEZOLIUZMAB (1200 MG) PRIOR TO HAEMORRHAGIC STROKE ONSET: 05/MAR/2019?MOST RECE
     Route: 041
     Dates: start: 20181213

REACTIONS (2)
  - Gastric haemorrhage [Recovered/Resolved]
  - Haemorrhagic stroke [Recovered/Resolved with Sequelae]

NARRATIVE: CASE EVENT DATE: 20190320
